FAERS Safety Report 21809227 (Version 2)
Quarter: 2023Q1

REPORT INFORMATION
  Report Type: Report from Study
  Country: US (occurrence: US)
  Receive Date: 20230103
  Receipt Date: 20230104
  Transmission Date: 20230417
  Serious: No
  Sender: FDA-Public Use
  Company Number: US-ABBVIE-4231153

PATIENT
  Sex: Female

DRUGS (1)
  1. HUMIRA [Suspect]
     Active Substance: ADALIMUMAB
     Indication: Crohn^s disease
     Dosage: CITRATE FREE- ?FORM STRENGTH: 40 MG
     Route: 058
     Dates: end: 202212

REACTIONS (2)
  - Intestinal polyp [Unknown]
  - Pain [Unknown]

NARRATIVE: CASE EVENT DATE: 20220101
